FAERS Safety Report 9107560 (Version 1)
Quarter: 2013Q1

REPORT INFORMATION
  Report Type: Spontaneous
  Country: US (occurrence: US)
  Receive Date: 20130221
  Receipt Date: 20130221
  Transmission Date: 20140127
  Serious: No
  Sender: FDA-Public Use
  Company Number: US-PFIZER INC-2013064458

PATIENT
  Age: 69 Year
  Sex: Female
  Weight: 57.14 kg

DRUGS (5)
  1. RELPAX [Suspect]
     Indication: MIGRAINE
     Dosage: 40 MG, 2X/DAY
     Route: 048
     Dates: end: 201212
  2. GABAPENTIN [Concomitant]
     Dosage: 3600 MG, 1X/DAY
  3. METFORMIN [Concomitant]
     Indication: DIABETES MELLITUS
     Dosage: UNK
  4. FLEXERIL [Concomitant]
     Dosage: UNK
  5. MAXZIDE [Concomitant]
     Dosage: UNK

REACTIONS (1)
  - Migraine [Unknown]
